FAERS Safety Report 8295941-1 (Version None)
Quarter: 2012Q2

REPORT INFORMATION
  Report Type: 
  Country: None (occurrence: None)
  Receive Date: 20120418
  Receipt Date: 20120413
  Transmission Date: 20120825
  Serious: Yes (Life-Threatening, Other)
  Sender: FDA-Public Use
  Company Number: JP-ABBOTT-12P-087-0921211-00

PATIENT
  Sex: Male
  Weight: 100 kg

DRUGS (10)
  1. DILTIAZEM HCL [Interacting]
     Indication: HYPERTENSION
     Dosage: 4.5 MCG/KG/MIN
     Route: 042
     Dates: start: 20100525, end: 20100526
  2. MIDAZOLAM HCL [Interacting]
     Indication: SEDATIVE THERAPY
     Dosage: 3 MG/HR
     Route: 042
     Dates: start: 20100525, end: 20100526
  3. THIAMYLAL SODIUM [Concomitant]
     Indication: INDUCTION OF ANAESTHESIA
     Route: 042
     Dates: start: 20100526, end: 20100526
  4. NICARDIPINE HCL [Interacting]
     Indication: HYPERTENSION
     Dosage: 4.17 MCG/KG/MIN
     Route: 042
     Dates: start: 20100525, end: 20100526
  5. FENTANYL [Concomitant]
     Indication: INDUCTION OF ANAESTHESIA
     Route: 042
     Dates: start: 20100526, end: 20100526
  6. NICARDIPINE HCL [Interacting]
     Indication: TACHYCARDIA
  7. DILTIAZEM HCL [Interacting]
     Indication: TACHYCARDIA
  8. OXYGEN [Concomitant]
     Indication: INDUCTION OF ANAESTHESIA
     Dosage: 6 L/MIN
  9. SEVOFLURANE [Suspect]
     Indication: MAINTENANCE OF ANAESTHESIA
     Dosage: 2%, 1 IN 1 DAY
     Route: 055
     Dates: start: 20100526, end: 20100526
  10. VECURONIUM BROMIDE [Concomitant]
     Indication: INDUCTION OF ANAESTHESIA
     Route: 042
     Dates: start: 20100526, end: 20100526

REACTIONS (5)
  - CARDIAC ARREST [None]
  - TOXICITY TO VARIOUS AGENTS [None]
  - OVERDOSE [None]
  - DRUG INTERACTION [None]
  - SINUS ARREST [None]
